FAERS Safety Report 10749078 (Version 1)
Quarter: 2015Q1

REPORT INFORMATION
  Report Type: Spontaneous
  Country: US (occurrence: None)
  Receive Date: 20150128
  Receipt Date: 20150128
  Transmission Date: 20150721
  Serious: No
  Sender: FDA-Public Use
  Company Number: None

PATIENT
  Age: 19 Year
  Sex: Male
  Weight: 68.04 kg

DRUGS (1)
  1. FLUCONAZOLE 200 MG GENERIC [Suspect]
     Active Substance: FLUCONAZOLE
     Indication: TINEA INFECTION
     Dosage: 2 TABSWEEK; NOW AN DIN 1 WEEK
     Route: 048

REACTIONS (1)
  - Hallucination, auditory [None]

NARRATIVE: CASE EVENT DATE: 20150127
